FAERS Safety Report 10475413 (Version 1)
Quarter: 2014Q3

REPORT INFORMATION
  Report Type: Spontaneous
  Country: US (occurrence: US)
  Receive Date: 20140925
  Receipt Date: 20140925
  Transmission Date: 20150326
  Serious: No
  Sender: FDA-Public Use
  Company Number: US-BAYER-2014-142355

PATIENT
  Age: 47 Year
  Sex: Female
  Weight: 61.22 kg

DRUGS (1)
  1. ALEVE [Suspect]
     Active Substance: NAPROXEN SODIUM
     Dosage: 2 DF, UNK
     Route: 048
     Dates: start: 201409, end: 201409

REACTIONS (2)
  - Drug ineffective [None]
  - Incorrect dose administered [None]

NARRATIVE: CASE EVENT DATE: 201409
